FAERS Safety Report 5794293-6 (Version None)
Quarter: 2008Q2

REPORT INFORMATION
  Report Type: 
  Country: None (occurrence: None)
  Receive Date: 20080625
  Receipt Date: 20080610
  Transmission Date: 20081010
  Serious: Yes (Hospitalization)
  Sender: FDA-Public Use
  Company Number: 2008AL005305

PATIENT
  Age: 80 Year
  Sex: Female
  Weight: 95.2554 kg

DRUGS (2)
  1. DIGOXIN [Suspect]
     Dosage: DAILY PO
     Route: 048
  2. GLUCOPHAGE [Concomitant]

REACTIONS (5)
  - ALOPECIA [None]
  - BALANCE DISORDER [None]
  - DIZZINESS [None]
  - DYSPNOEA [None]
  - FALL [None]
